FAERS Safety Report 5511360-2 (Version None)
Quarter: 2007Q4

REPORT INFORMATION
  Report Type: 
  Country: None (occurrence: None)
  Receive Date: 20071109
  Receipt Date: 20071001
  Transmission Date: 20080405
  Serious: No
  Sender: FDA-Public Use
  Company Number: A0682123A

PATIENT
  Sex: Female

DRUGS (1)
  1. ALTABAX [Suspect]
     Indication: IMPETIGO
     Dosage: 1APP TWICE PER DAY
     Route: 061

REACTIONS (3)
  - APPLICATION SITE PAIN [None]
  - APPLICATION SITE ULCER [None]
  - CRYING [None]
